FAERS Safety Report 9305491 (Version 2)
Quarter: 2013Q3

REPORT INFORMATION
  Report Type: Spontaneous
  Country: ES (occurrence: ES)
  Receive Date: 20130523
  Receipt Date: 20130716
  Transmission Date: 20140515
  Serious: Yes (Hospitalization, Other)
  Sender: FDA-Public Use
  Company Number: ES-AMGEN-ESPSP2013036184

PATIENT
  Age: 70 Year
  Sex: Female
  Weight: 60 kg

DRUGS (4)
  1. PROLIA [Suspect]
     Indication: OSTEOPOROSIS
     Dosage: 1 DOSE
     Dates: start: 20121219
  2. HEPARIN [Suspect]
  3. METHOTREXATE [Concomitant]
     Indication: ARTHRITIS
  4. CALCIUM [Concomitant]

REACTIONS (8)
  - Thrombophlebitis [Not Recovered/Not Resolved]
  - Thrombosis [Recovering/Resolving]
  - Inflammation [Recovering/Resolving]
  - Pain [Unknown]
  - Rheumatoid factor increased [Unknown]
  - Local swelling [Recovering/Resolving]
  - Contusion [Unknown]
  - Injury [Unknown]
